FAERS Safety Report 22105348 (Version 1)
Quarter: 2023Q1

REPORT INFORMATION
  Report Type: Spontaneous
  Country: JP (occurrence: JP)
  Receive Date: 20230317
  Receipt Date: 20230317
  Transmission Date: 20230418
  Serious: Yes (Hospitalization, Other)
  Sender: FDA-Public Use
  Company Number: JP-BRISTOL-MYERS SQUIBB COMPANY-BMS-2021-033246

PATIENT
  Age: 61 Year
  Sex: Female

DRUGS (22)
  1. YERVOY [Suspect]
     Active Substance: IPILIMUMAB
     Indication: Non-small cell lung cancer recurrent
     Route: 041
     Dates: start: 20210330, end: 20210730
  2. OPDIVO [Suspect]
     Active Substance: NIVOLUMAB
     Indication: Non-small cell lung cancer recurrent
     Dosage: 240 MILLIGRAM, Q3WK
     Route: 041
     Dates: start: 20210330, end: 20210827
  3. PREDNISOLONE [Suspect]
     Active Substance: PREDNISOLONE
     Indication: Colitis
     Dates: start: 20211028, end: 20211106
  4. PREDNISOLONE [Suspect]
     Active Substance: PREDNISOLONE
     Dates: start: 20211107, end: 20211113
  5. PREDNISOLONE [Suspect]
     Active Substance: PREDNISOLONE
     Dates: start: 20211114, end: 20211120
  6. PREDNISOLONE [Suspect]
     Active Substance: PREDNISOLONE
     Dates: start: 20211121, end: 20211127
  7. PREDNISOLONE [Suspect]
     Active Substance: PREDNISOLONE
     Dates: start: 20211128, end: 20211207
  8. PREDNISOLONE [Suspect]
     Active Substance: PREDNISOLONE
     Dates: start: 20211208, end: 20211217
  9. PREDNISOLONE [Suspect]
     Active Substance: PREDNISOLONE
     Dates: start: 20211218, end: 20220115
  10. PREDNISOLONE [Suspect]
     Active Substance: PREDNISOLONE
     Dates: start: 20220116, end: 20220129
  11. PREDNISOLONE [Suspect]
     Active Substance: PREDNISOLONE
     Dates: start: 20220130, end: 20220212
  12. PREDNISOLONE [Suspect]
     Active Substance: PREDNISOLONE
     Dates: start: 20220213, end: 20220325
  13. PREDNISOLONE [Suspect]
     Active Substance: PREDNISOLONE
     Dates: start: 20220326, end: 20220430
  14. PREDNISOLONE [Suspect]
     Active Substance: PREDNISOLONE
     Dates: start: 20220501, end: 20220527
  15. PREDNISOLONE [Suspect]
     Active Substance: PREDNISOLONE
     Dates: start: 20220528, end: 20220617
  16. PREDNISOLONE [Suspect]
     Active Substance: PREDNISOLONE
     Dates: start: 20220618, end: 20220715
  17. PREDNISOLONE [Suspect]
     Active Substance: PREDNISOLONE
     Dates: start: 20220716, end: 20220805
  18. PREDNISOLONE [Suspect]
     Active Substance: PREDNISOLONE
     Dates: start: 20220806, end: 20220902
  19. PREDNISOLONE [Suspect]
     Active Substance: PREDNISOLONE
     Dates: start: 20220903, end: 20230106
  20. PREDNISOLONE [Suspect]
     Active Substance: PREDNISOLONE
     Dates: start: 20230106, end: 20230224
  21. PREDNISOLONE [Suspect]
     Active Substance: PREDNISOLONE
     Dates: start: 20230225
  22. UNSPECIFIED INGREDIENT [Concomitant]
     Active Substance: UNSPECIFIED INGREDIENT
     Indication: Product used for unknown indication
     Dosage: UNK

REACTIONS (8)
  - Tubulointerstitial nephritis [Recovering/Resolving]
  - Blood creatinine increased [Recovering/Resolving]
  - Dehydration [Unknown]
  - Hyperthyroidism [Recovered/Resolved]
  - Hypothyroidism [Recovering/Resolving]
  - Colitis [Recovering/Resolving]
  - Pneumatosis intestinalis [Recovered/Resolved]
  - Silent thyroiditis [Not Recovered/Not Resolved]

NARRATIVE: CASE EVENT DATE: 20210403
